FAERS Safety Report 21138585 (Version 1)
Quarter: 2022Q3

REPORT INFORMATION
  Report Type: Spontaneous
  Country: US (occurrence: US)
  Receive Date: 20220727
  Receipt Date: 20220727
  Transmission Date: 20221027
  Serious: Yes (Other)
  Sender: FDA-Public Use
  Company Number: US-FreseniusKabi-FK202210434

PATIENT
  Age: 40 Year
  Sex: Male

DRUGS (2)
  1. PROPOFOL [Suspect]
     Active Substance: PROPOFOL
     Indication: Sedation
     Dosage: UP TO 60 UG/KG/MIN
  2. FENTANYL [Concomitant]
     Active Substance: FENTANYL
     Indication: Analgesic therapy

REACTIONS (1)
  - Priapism [Recovered/Resolved]
